FAERS Safety Report 25372465 (Version 1)
Quarter: 2025Q2

REPORT INFORMATION
  Report Type: Spontaneous
  Country: NL (occurrence: NL)
  Receive Date: 20250529
  Receipt Date: 20250529
  Transmission Date: 20250716
  Serious: Yes (Hospitalization)
  Sender: TEVA
  Company Number: None

PATIENT
  Age: 68 Year
  Sex: Male
  Weight: 73 kg

DRUGS (5)
  1. PREDNISONE [Suspect]
     Active Substance: PREDNISONE
     Indication: Anti-neutrophil cytoplasmic antibody positive vasculitis
     Dosage: TAPERING SCHEDULE, STARTING 20-02 FROM 60MG 1D TO 10MG 1D, BRAND NAME NOT SPECIFIED
     Route: 048
     Dates: start: 20250220
  2. PREDNISONE [Suspect]
     Active Substance: PREDNISONE
     Indication: Anti-neutrophil cytoplasmic antibody positive vasculitis
     Dosage: TO 10 MG 1 D, BRAND NAME NOT SPECIFIED
     Route: 065
  3. RITUXIMAB [Suspect]
     Active Substance: RITUXIMAB
     Indication: Anti-neutrophil cytoplasmic antibody positive vasculitis
     Dosage: 1000MG 1X EVERY 2 WEEKS, RITUXIMAB INFOPL CONC / BRAND NAME NOT SPECIFIED
     Route: 065
     Dates: start: 20250220
  4. MEROPENEM [Concomitant]
     Active Substance: MEROPENEM
     Indication: Product used for unknown indication
     Route: 065
  5. CYCLOPHOSPHAMIDE [Suspect]
     Active Substance: CYCLOPHOSPHAMIDE
     Indication: Anti-neutrophil cytoplasmic antibody positive vasculitis
     Dosage: 500MG 1X EVERY 2 WEEKS, / BRAND NAME NOT SPECIFIED
     Route: 065
     Dates: start: 20250220

REACTIONS (1)
  - Cytomegalovirus colitis [Recovering/Resolving]
